FAERS Safety Report 24359068 (Version 1)
Quarter: 2024Q3

REPORT INFORMATION
  Report Type: Spontaneous
  Country: FR (occurrence: FR)
  Receive Date: 20240924
  Receipt Date: 20240924
  Transmission Date: 20241016
  Serious: Yes (Death)
  Sender: TEVA
  Company Number: None

PATIENT
  Age: 38 Year
  Sex: Male

DRUGS (4)
  1. BUPRENORPHINE [Suspect]
     Active Substance: BUPRENORPHINE
     Indication: Product used for unknown indication
     Route: 065
     Dates: end: 20240525
  2. CANNABIS SATIVA SUBSP. INDICA TOP [Suspect]
     Active Substance: CANNABIS SATIVA SUBSP. INDICA TOP
     Indication: Product used for unknown indication
     Dosage: SEVERAL JOINTS PER DAY
     Route: 065
     Dates: end: 20240525
  3. COCAINE [Suspect]
     Active Substance: COCAINE
     Indication: Product used for unknown indication
     Route: 065
     Dates: start: 20240525
  4. ALCOHOL [Suspect]
     Active Substance: ALCOHOL
     Indication: Product used for unknown indication
     Dosage: ALCOHOL (DRINK)
     Route: 048
     Dates: end: 20240525

REACTIONS (7)
  - Cardiac arrest [Fatal]
  - Hallucination [Fatal]
  - Aggression [Fatal]
  - Anosognosia [Fatal]
  - Drug abuse [Fatal]
  - Psychiatric decompensation [Fatal]
  - Drug withdrawal syndrome [Fatal]

NARRATIVE: CASE EVENT DATE: 20240524
